FAERS Safety Report 9191416 (Version 1)
Quarter: 2013Q1

REPORT INFORMATION
  Report Type: Spontaneous
  Country: IN (occurrence: IN)
  Receive Date: 20130326
  Receipt Date: 20130326
  Transmission Date: 20140127
  Serious: Yes (Other)
  Sender: FDA-Public Use
  Company Number: IN-WATSON-2013-04729

PATIENT
  Age: 47 Year
  Sex: Female

DRUGS (4)
  1. ZOLPIDEM TARTRATE (UNKNOWN) [Suspect]
     Indication: INSOMNIA
     Dosage: UNK, UNKNOWN
     Route: 065
  2. CLONAZEPAM (UNKNOWN) [Suspect]
     Indication: INSOMNIA
     Dosage: UNK, UNKNOWN
     Route: 065
  3. LORAZEPAM [Suspect]
     Indication: INSOMNIA
     Dosage: UNK, UNKNOWN
     Route: 065
  4. ALPRAZOLAM (UNKNOWN) [Suspect]
     Indication: INSOMNIA
     Dosage: UNK, UNKNOWN
     Route: 065

REACTIONS (2)
  - Drug abuse [Unknown]
  - Intentional drug misuse [Unknown]
